FAERS Safety Report 7420750-2 (Version None)
Quarter: 2011Q2

REPORT INFORMATION
  Report Type: 
  Country: None (occurrence: None)
  Receive Date: 20110418
  Receipt Date: 20110404
  Transmission Date: 20111010
  Serious: Yes (Hospitalization)
  Sender: FDA-Public Use
  Company Number: FR-ROCHE-759027

PATIENT
  Sex: Male
  Weight: 76 kg

DRUGS (13)
  1. CYCLOSPORINE [Suspect]
     Dosage: EVERYDAY
     Route: 048
     Dates: start: 20110120
  2. PREDNISONE [Suspect]
     Route: 048
     Dates: start: 20101219
  3. PREDNISONE [Suspect]
     Route: 048
  4. TAHOR [Concomitant]
     Dates: start: 20110118
  5. BACTRIM [Concomitant]
     Dates: start: 20101219
  6. OROCAL [Concomitant]
     Dates: start: 20101221
  7. MYCOPHENOLATE MOFETIL [Suspect]
     Route: 048
  8. AMLODIPINE BESYLATE [Concomitant]
     Dates: start: 20110123
  9. ROVALCYTE [Concomitant]
     Dates: start: 20101225
  10. CYCLOSPORINE [Suspect]
     Dosage: FREQUENCY: EVERYDAY
     Route: 048
     Dates: start: 20101220
  11. MYCOPHENOLATE MOFETIL [Suspect]
     Route: 048
     Dates: start: 20101218
  12. CYCLOSPORINE [Suspect]
     Route: 048
  13. AMLODIPINE BESYLATE [Concomitant]
     Dates: start: 20100114, end: 20110120

REACTIONS (2)
  - RENAL LYMPHOCELE [None]
  - POSTRENAL FAILURE [None]
